FAERS Safety Report 8395137-9 (Version None)
Quarter: 2012Q2

REPORT INFORMATION
  Report Type: 
  Country: None (occurrence: None)
  Receive Date: 20120530
  Receipt Date: 20120521
  Transmission Date: 20120825
  Serious: Yes (Other)
  Sender: FDA-Public Use
  Company Number: US-JNJFOC-20120516572

PATIENT
  Age: 50 Year
  Sex: Female

DRUGS (3)
  1. INFLIXIMAB, RECOMBINANT [Suspect]
     Indication: ANKYLOSING SPONDYLITIS
     Route: 042
     Dates: start: 20120101
  2. METHOTREXATE [Suspect]
     Indication: ANKYLOSING SPONDYLITIS
     Dates: start: 20100101, end: 20120101
  3. HUMIRA [Suspect]
     Indication: ANKYLOSING SPONDYLITIS
     Route: 050
     Dates: start: 20100101, end: 20120101

REACTIONS (3)
  - DRUG INEFFECTIVE [None]
  - BLADDER CANCER [None]
  - LYMPHOMA [None]
